FAERS Safety Report 11003142 (Version 1)
Quarter: 2015Q2

REPORT INFORMATION
  Report Type: Spontaneous
  Country: US (occurrence: None)
  Receive Date: 20150401
  Receipt Date: 20150401
  Transmission Date: 20150821
  Serious: No
  Sender: FDA-Public Use
  Company Number: AXC-2014-000760

PATIENT
  Age: 70 Year
  Sex: Female
  Weight: 56.7 kg

DRUGS (4)
  1. AMITRIPTYLINE (AMITRIPTYLINE) [Concomitant]
     Active Substance: AMITRIPTYLINE
     Indication: DEPRESSION
     Dosage: TOO ON AND OFF
     Dates: end: 201501
  2. VIOKACE [Suspect]
     Active Substance: PANCRELIPASE AMYLASE\PANCRELIPASE LIPASE\PANCRELIPASE PROTEASE
     Indication: PANCREATIC INSUFFICIENCY
     Dosage: 3 DF, TID WITH MEALS, ORAL
     Route: 048
     Dates: start: 2014, end: 2014
  3. AMITRIPTYLINE (AMITRIPTYLINE) [Concomitant]
     Active Substance: AMITRIPTYLINE
     Indication: ANXIETY
     Dosage: TOO ON AND OFF
     Dates: end: 201501
  4. GABAPENTIN. [Suspect]
     Active Substance: GABAPENTIN
     Indication: ABDOMINAL PAIN UPPER

REACTIONS (5)
  - Local swelling [None]
  - Gait disturbance [None]
  - Balance disorder [None]
  - Myalgia [None]
  - Flatulence [None]

NARRATIVE: CASE EVENT DATE: 2014
